FAERS Safety Report 9495310 (Version 3)
Quarter: 2013Q4

REPORT INFORMATION
  Report Type: Spontaneous
  Country: AR (occurrence: AR)
  Receive Date: 20130903
  Receipt Date: 20131112
  Transmission Date: 20140711
  Serious: Yes (Other)
  Sender: FDA-Public Use
  Company Number: AR-PFIZER INC-2013253454

PATIENT
  Sex: Female

DRUGS (1)
  1. DOSTINEX [Suspect]
     Indication: HYPERPROLACTINAEMIA
     Dosage: UNK

REACTIONS (3)
  - Pituitary tumour benign [Unknown]
  - Diabetes mellitus [Unknown]
  - Acromegaly [Unknown]
